FAERS Safety Report 7689814-2 (Version None)
Quarter: 2011Q3

REPORT INFORMATION
  Report Type: 
  Country: None (occurrence: None)
  Receive Date: 20110818
  Receipt Date: 20110811
  Transmission Date: 20111222
  Serious: Yes (Hospitalization)
  Sender: FDA-Public Use
  Company Number: US-BIOGENIDEC-2011BI020243

PATIENT
  Age: 46 Year
  Sex: Female

DRUGS (9)
  1. CLONAZEPAM [Concomitant]
  2. OXYCODONE HCL [Concomitant]
  3. TYSABRI [Suspect]
     Indication: MULTIPLE SCLEROSIS
     Route: 042
     Dates: start: 20110428, end: 20110428
  4. PHENERGAN HCL [Concomitant]
  5. VESICARE [Concomitant]
  6. PRILOSEC [Concomitant]
  7. LISINOPRIL [Concomitant]
  8. OXYCONTIN [Concomitant]
  9. RESTORIL [Concomitant]

REACTIONS (2)
  - GASTROINTESTINAL HAEMORRHAGE [None]
  - COLITIS [None]
